FAERS Safety Report 14947287 (Version 1)
Quarter: 2018Q2

REPORT INFORMATION
  Report Type: Spontaneous
  Country: FR (occurrence: FR)
  Receive Date: 20180529
  Receipt Date: 20180529
  Transmission Date: 20180711
  Serious: Yes (Other)
  Sender: FDA-Public Use
  Company Number: FR-MERCK KGAA-2048585

PATIENT
  Age: 44 Year
  Sex: Female

DRUGS (1)
  1. NOVOTHYROX [Suspect]
     Active Substance: LEVOTHYROXINE SODIUM
     Indication: POST PROCEDURAL HYPOTHYROIDISM

REACTIONS (30)
  - Paraesthesia [None]
  - Disturbance in attention [None]
  - Crying [None]
  - Dysstasia [None]
  - Mental impairment [None]
  - Visual impairment [None]
  - Fluid retention [None]
  - Blood thyroid stimulating hormone increased [None]
  - Amenorrhoea [None]
  - Vertigo [None]
  - Hypoacusis [None]
  - Libido decreased [None]
  - Alopecia [None]
  - Muscle spasms [None]
  - Insomnia [None]
  - Migraine [None]
  - Social avoidant behaviour [None]
  - Hypotension [None]
  - Dyspepsia [None]
  - Bradyphrenia [None]
  - Memory impairment [None]
  - Loss of personal independence in daily activities [None]
  - Irritability [None]
  - Anxiety [None]
  - Depressed mood [None]
  - Affect lability [None]
  - Palpitations [None]
  - Dyspnoea [None]
  - Fatigue [None]
  - Constipation [None]

NARRATIVE: CASE EVENT DATE: 20170707
